FAERS Safety Report 10328006 (Version 2)
Quarter: 2014Q3

REPORT INFORMATION
  Report Type: Spontaneous
  Country: US (occurrence: US)
  Receive Date: 20140721
  Receipt Date: 20140807
  Transmission Date: 20150326
  Serious: Yes (Other)
  Sender: FDA-Public Use
  Company Number: US-AMGEN INC.-USASP2014052882

PATIENT
  Age: 65 Year
  Sex: Female
  Weight: 114.29 kg

DRUGS (9)
  1. ENBREL [Suspect]
     Active Substance: ETANERCEPT
     Indication: RHEUMATOID ARTHRITIS
  2. ENBREL [Suspect]
     Active Substance: ETANERCEPT
     Indication: PSORIASIS
     Dosage: 50 MG, QWK
     Route: 065
     Dates: start: 20130925
  3. VITAMIN D3 [Concomitant]
     Active Substance: CHOLECALCIFEROL
     Dosage: 1000 IU, DAILY
  4. CALCIUM + MAGNESIUM [Concomitant]
     Dosage: UNK
  5. VITAMIN C [Concomitant]
     Active Substance: ASCORBIC ACID
     Dosage: UNK
  6. METHOTREXATE [Concomitant]
     Active Substance: METHOTREXATE
     Dosage: 7.5 MG, QWK
  7. ISONIAZID. [Concomitant]
     Active Substance: ISONIAZID
     Dosage: UNK
     Dates: start: 20130719
  8. OMEGA 3                            /01333901/ [Concomitant]
     Dosage: UNK
  9. PROVIGIL [Concomitant]
     Active Substance: MODAFINIL
     Dosage: UNK
     Dates: end: 201312

REACTIONS (17)
  - Alopecia [Unknown]
  - Cataract [Unknown]
  - Rheumatoid arthritis [Unknown]
  - Pain in extremity [Not Recovered/Not Resolved]
  - Synovial disorder [Unknown]
  - Hypermetropia [Unknown]
  - Hand deformity [Unknown]
  - Finger deformity [Unknown]
  - Bladder disorder [Unknown]
  - Back pain [Unknown]
  - Dyspnoea [Unknown]
  - Arthralgia [Unknown]
  - Weight increased [Unknown]
  - Exostosis [Unknown]
  - Urinary tract infection [Unknown]
  - Musculoskeletal stiffness [Not Recovered/Not Resolved]
  - Rotator cuff syndrome [Unknown]

NARRATIVE: CASE EVENT DATE: 20140505
